FAERS Safety Report 10254521 (Version 1)
Quarter: 2014Q2

REPORT INFORMATION
  Report Type: Spontaneous
  Country: US (occurrence: US)
  Receive Date: 20140624
  Receipt Date: 20140624
  Transmission Date: 20141212
  Serious: Yes (Death)
  Sender: FDA-Public Use
  Company Number: US-CELGENEUS-163-21880-14062796

PATIENT
  Age: 74 Year
  Sex: Female

DRUGS (5)
  1. REVLIMID [Suspect]
     Indication: PLASMA CELL MYELOMA
     Dosage: 25 MILLIGRAM
     Route: 048
     Dates: start: 200909
  2. REVLIMID [Suspect]
     Dosage: 15-10
     Route: 065
     Dates: start: 201001
  3. REVLIMID [Suspect]
     Dosage: 10 MILLIGRAM
     Route: 065
     Dates: start: 201302
  4. THALOMID [Suspect]
     Indication: PLASMA CELL MYELOMA
     Dosage: 100 MILLIGRAM
     Route: 048
     Dates: start: 201401
  5. THALOMID [Suspect]
     Dosage: 50-100 MG
     Route: 048
     Dates: start: 201402

REACTIONS (1)
  - Death [Fatal]
